FAERS Safety Report 9703389 (Version 2)
Quarter: 2014Q1

REPORT INFORMATION
  Report Type: Report from Study
  Country: NL (occurrence: NL)
  Receive Date: 20131122
  Receipt Date: 20140221
  Transmission Date: 20141002
  Serious: Yes (Death)
  Sender: FDA-Public Use
  Company Number: PHHY2013NL133694

PATIENT
  Age: 75 Year
  Sex: Female

DRUGS (3)
  1. ZOMETA [Suspect]
     Indication: BREAST CANCER METASTATIC
     Dosage: 4 MG/ 100ML ONCE EVERY 52 WEEKS
     Route: 042
  2. ZOMETA [Suspect]
     Dosage: 4 MG/ 100ML ONCE EVERY 52 WEEKS
     Route: 042
     Dates: start: 20120822
  3. ZOMETA [Suspect]
     Dosage: 4 MG/ 100ML ONCE EVERY 52 WEEKS
     Route: 042
     Dates: start: 20130822

REACTIONS (1)
  - Neoplasm malignant [Fatal]
